FAERS Safety Report 5930428-X (Version None)
Quarter: 2008Q4

REPORT INFORMATION
  Report Type: 
  Country: None (occurrence: None)
  Receive Date: 20081022
  Receipt Date: 20081010
  Transmission Date: 20090506
  Serious: No
  Sender: FDA-Public Use
  Company Number: 2008S1018522

PATIENT
  Age: 5 Week
  Sex: Female
  Weight: 4.2185 kg

DRUGS (1)
  1. AMNESTEEM [Suspect]
     Dates: start: 20071211, end: 20071230

REACTIONS (2)
  - EAR INFECTION [None]
  - MATERNAL DRUGS AFFECTING FOETUS [None]
